FAERS Safety Report 12747488 (Version 1)
Quarter: 2016Q3

REPORT INFORMATION
  Report Type: Spontaneous
  Country: US (occurrence: US)
  Receive Date: 20160915
  Receipt Date: 20160915
  Transmission Date: 20161109
  Serious: No
  Sender: FDA-Public Use
  Company Number: US-JAZZ-2016-US-009687

PATIENT
  Sex: Female

DRUGS (39)
  1. PREMARIN [Concomitant]
     Active Substance: ESTROGENS, CONJUGATED
  2. MOTRIN IB [Concomitant]
     Active Substance: IBUPROFEN
  3. PROBIOTIC [Concomitant]
     Active Substance: PROBIOTICS NOS
  4. PREDNISONE. [Concomitant]
     Active Substance: PREDNISONE
  5. TAURINE [Concomitant]
     Active Substance: TAURINE
  6. VITAMIN C [Concomitant]
     Active Substance: ASCORBIC ACID
  7. CYANOCOBALAMIN. [Concomitant]
     Active Substance: CYANOCOBALAMIN
  8. WHEY PROTEIN [Concomitant]
  9. TRAZODONE HYDROCHLORIDE. [Concomitant]
     Active Substance: TRAZODONE HYDROCHLORIDE
  10. UNASYN [Concomitant]
     Active Substance: AMPICILLIN SODIUM\SULBACTAM SODIUM
  11. TYLENOL WITH CODEINE [Concomitant]
     Active Substance: ACETAMINOPHEN\CODEINE PHOSPHATE
  12. PEPCID [Concomitant]
     Active Substance: FAMOTIDINE
  13. PRILOSEC [Concomitant]
     Active Substance: OMEPRAZOLE MAGNESIUM
  14. ONDANSETRON [Concomitant]
     Active Substance: ONDANSETRON
  15. ASPIRIN. [Concomitant]
     Active Substance: ASPIRIN
  16. PROTONIX [Concomitant]
     Active Substance: PANTOPRAZOLE SODIUM
  17. ATIVAN [Concomitant]
     Active Substance: LORAZEPAM
  18. PHENOBARBITAL. [Concomitant]
     Active Substance: PHENOBARBITAL
  19. NYSTATIN. [Concomitant]
     Active Substance: NYSTATIN
  20. PROPRANOLOL [Concomitant]
     Active Substance: PROPRANOLOL\PROPRANOLOL HYDROCHLORIDE
  21. KEFLEX [Concomitant]
     Active Substance: CEPHALEXIN
  22. PROGESTERONE W/ESTROGENS [Concomitant]
  23. OXYCODONE AND ACETAMINOPHEN [Concomitant]
     Active Substance: ACETAMINOPHEN\OXYCODONE HYDROCHLORIDE
  24. GABAPENTIN. [Concomitant]
     Active Substance: GABAPENTIN
  25. INDERAL [Concomitant]
     Active Substance: PROPRANOLOL HYDROCHLORIDE
  26. PYRIDOXINE HCL [Concomitant]
     Active Substance: PYRIDOXINE HYDROCHLORIDE
  27. AMINOACETIC ACID [Concomitant]
     Active Substance: GLYCINE
  28. TYLENOL EXTRA STRENGTH [Concomitant]
     Active Substance: ACETAMINOPHEN
  29. XYREM [Suspect]
     Active Substance: SODIUM OXYBATE
     Dosage: 4.5 G, BID
     Route: 048
     Dates: start: 200709
  30. 5-HTP [Concomitant]
     Active Substance: OXITRIPTAN
  31. TRYPTOPHAN [Concomitant]
     Active Substance: TRYPTOPHAN
  32. LOPRESSOR [Concomitant]
     Active Substance: METOPROLOL TARTRATE
  33. PROZAC [Concomitant]
     Active Substance: FLUOXETINE HYDROCHLORIDE
  34. VISTARIL [Concomitant]
     Active Substance: HYDROXYZINE PAMOATE
  35. XYLOCAINE [Concomitant]
     Active Substance: LIDOCAINE HYDROCHLORIDE
  36. XYREM [Suspect]
     Active Substance: SODIUM OXYBATE
     Indication: FIBROMYALGIA
     Dosage: 2.25 G, BID
     Route: 048
     Dates: start: 200510, end: 200709
  37. CIPRO [Concomitant]
     Active Substance: CIPROFLOXACIN HYDROCHLORIDE
  38. PAXIL [Concomitant]
     Active Substance: PAROXETINE HYDROCHLORIDE
  39. VITAMIN B6 [Concomitant]
     Active Substance: PYRIDOXINE HYDROCHLORIDE

REACTIONS (1)
  - Sinus disorder [Not Recovered/Not Resolved]
